FAERS Safety Report 5295096-1 (Version None)
Quarter: 2007Q1

REPORT INFORMATION
  Report Type: 
  Country: None (occurrence: None)
  Receive Date: 20070201
  Receipt Date: 20061022
  Transmission Date: 20070707
  Serious: No
  Sender: FDA-Public Use
  Company Number: 2006PV023669

PATIENT
  Age: 48 Year
  Sex: Female
  Weight: 112.4921 kg

DRUGS (3)
  1. BYETTA [Suspect]
     Indication: DIABETES MELLITUS NON-INSULIN-DEPENDENT
     Dosage: 5 MCG;BID;SC
     Route: 058
     Dates: start: 20061018
  2. METFORMIN HCL [Concomitant]
  3. GLIMEPIRIDE [Concomitant]

REACTIONS (5)
  - ANOREXIA [None]
  - CHEST DISCOMFORT [None]
  - ERUCTATION [None]
  - MUSCULOSKELETAL DISCOMFORT [None]
  - NAUSEA [None]
